FAERS Safety Report 7486011-0 (Version None)
Quarter: 2011Q2

REPORT INFORMATION
  Report Type: 
  Country: None (occurrence: None)
  Receive Date: 20110517
  Receipt Date: 20110502
  Transmission Date: 20111010
  Serious: Yes (Other)
  Sender: FDA-Public Use
  Company Number: US-BAYER-2011-038461

PATIENT
  Sex: Female
  Weight: 73 kg

DRUGS (1)
  1. ALKA-SELTZER PLUS COLD FORMULA ORANGE ZEST [Suspect]
     Dosage: 2 DF, ONCE
     Route: 048
     Dates: start: 20101101, end: 20110429

REACTIONS (7)
  - TINNITUS [None]
  - INSOMNIA [None]
  - DRY MOUTH [None]
  - NAUSEA [None]
  - FATIGUE [None]
  - SKIN ATROPHY [None]
  - CONTUSION [None]
